FAERS Safety Report 23099020 (Version 2)
Quarter: 2023Q4

REPORT INFORMATION
  Report Type: Other
  Country: JP (occurrence: JP)
  Receive Date: 20231024
  Receipt Date: 20231117
  Transmission Date: 20240110
  Serious: Yes (Other)
  Sender: FDA-Public Use
  Company Number: JP-CHUGAI-2022021351

PATIENT
  Age: 8 Year
  Sex: Female
  Weight: 21 kg

DRUGS (14)
  1. EVRYSDI [Suspect]
     Active Substance: RISDIPLAM
     Indication: Spinal muscular atrophy
     Dosage: 5 MILLIGRAM, QD
     Route: 048
     Dates: start: 20220328, end: 20220417
  2. EVRYSDI [Suspect]
     Active Substance: RISDIPLAM
     Dosage: 4.13 MILLIGRAM, QD
     Route: 048
     Dates: start: 20220418, end: 20220424
  3. EVRYSDI [Suspect]
     Active Substance: RISDIPLAM
     Dosage: 4.2 MILLIGRAM, QD
     Route: 048
     Dates: start: 20220425, end: 20220515
  4. EVRYSDI [Suspect]
     Active Substance: RISDIPLAM
     Dosage: 4.35 MILLIGRAM, QD
     Route: 048
     Dates: start: 20220516, end: 20220619
  5. EVRYSDI [Suspect]
     Active Substance: RISDIPLAM
     Dosage: 4.43 MILLIGRAM, QD
     Route: 048
     Dates: start: 20220620, end: 20220724
  6. EVRYSDI [Suspect]
     Active Substance: RISDIPLAM
     Dosage: 4.5 MILLIGRAM, QD
     Route: 048
     Dates: start: 20220725, end: 20220904
  7. EVRYSDI [Suspect]
     Active Substance: RISDIPLAM
     Dosage: 4.8 MILLIGRAM, QD
     Route: 048
     Dates: start: 20220905, end: 20220905
  8. EVRYSDI [Suspect]
     Active Substance: RISDIPLAM
     Dosage: 4.5 MILLIGRAM, QD
     Route: 048
     Dates: start: 20220906, end: 20221002
  9. EVRYSDI [Suspect]
     Active Substance: RISDIPLAM
     Dosage: 4.65 MILLIGRAM, QD
     Route: 048
     Dates: start: 20221003, end: 20221204
  10. EVRYSDI [Suspect]
     Active Substance: RISDIPLAM
     Dosage: 5 MILLIGRAM, QD
     Route: 048
     Dates: start: 20221205, end: 20230328
  11. PERIACTIN [Concomitant]
     Active Substance: CYPROHEPTADINE HYDROCHLORIDE
     Dosage: UNK
  12. PRANLUKAST [Concomitant]
     Active Substance: PRANLUKAST
     Dosage: UNK
  13. CARBOCYSTEINE [Concomitant]
     Active Substance: CARBOCYSTEINE
     Dosage: UNK
  14. MUCOSAL [Concomitant]
     Dosage: UNK

REACTIONS (3)
  - Weight decreased [Recovered/Resolved]
  - Diarrhoea [Recovered/Resolved]
  - Rash [Recovered/Resolved]

NARRATIVE: CASE EVENT DATE: 20220401
